FAERS Safety Report 13186719 (Version 2)
Quarter: 2017Q1

REPORT INFORMATION
  Report Type: Report from Study
  Country: US (occurrence: US)
  Receive Date: 20170205
  Receipt Date: 20170321
  Transmission Date: 20170428
  Serious: Yes (Hospitalization, Other)
  Sender: FDA-Public Use
  Company Number: US-UCBSA-2016042085

PATIENT
  Sex: Female

DRUGS (1)
  1. LEVETIRACETAM. [Suspect]
     Active Substance: LEVETIRACETAM
     Indication: GENERALISED TONIC-CLONIC SEIZURE
     Dosage: 1000 MG, 3X/DAY (TID),,BUT WAS PRESCRIBED 1000 MG BID

REACTIONS (4)
  - Kidney infection [Unknown]
  - Intentional product misuse [Unknown]
  - Urinary tract infection [Unknown]
  - Seizure [Unknown]
